FAERS Safety Report 24578578 (Version 1)
Quarter: 2024Q4

REPORT INFORMATION
  Report Type: Spontaneous
  Country: US (occurrence: US)
  Receive Date: 20241105
  Receipt Date: 20241105
  Transmission Date: 20250114
  Serious: Yes (Other)
  Sender: AUROBINDO
  Company Number: US-MLMSERVICE-20170814-0849559-1

PATIENT
  Age: 67 Year
  Sex: Male

DRUGS (4)
  1. CAPECITABINE [Suspect]
     Active Substance: CAPECITABINE
     Indication: Adenocarcinoma
     Dosage: 1000 MILLIGRAM, CYCLICAL,DOSE-REDUCED CAPECITABINE 1000 MG BY MOUTH TWICE DAILY
     Route: 048
  2. CAPECITABINE [Suspect]
     Active Substance: CAPECITABINE
     Indication: Metastatic neoplasm
     Dosage: 1000 MILLIGRAM, CYCLICAL,DOSE-REDUCED CAPECITABINE 1000 MG BY MOUTH TWICE DAILY
     Route: 048
  3. OXALIPLATIN [Suspect]
     Active Substance: OXALIPLATIN
     Indication: Metastatic neoplasm
     Dosage: 130 MILLIGRAM/SQ. METER, CYCLICAL, DOSE-REDUCED CAPECITABINE 1000 MG BY MOUTH TWICE DAILY
     Route: 042
  4. OXALIPLATIN [Suspect]
     Active Substance: OXALIPLATIN
     Indication: Adenocarcinoma
     Dosage: 130 MILLIGRAM/SQ. METER, CYCLICAL, DOSE-REDUCED CAPECITABINE 1000 MG BY MOUTH TWICE DAILY
     Route: 042

REACTIONS (3)
  - Neuropathy peripheral [Unknown]
  - Neutropenia [Unknown]
  - Performance status decreased [Unknown]
